FAERS Safety Report 9279580 (Version 3)
Quarter: 2014Q1

REPORT INFORMATION
  Report Type: Spontaneous
  Country: US (occurrence: US)
  Receive Date: 20130509
  Receipt Date: 20140206
  Transmission Date: 20141002
  Serious: Yes (Death, Other)
  Sender: FDA-Public Use
  Company Number: US-AMGEN-USASP2013032125

PATIENT
  Age: 92 Year
  Sex: Male

DRUGS (5)
  1. PROCRIT [Suspect]
     Indication: ANAEMIA
     Dosage: UNK UNK, QWK
     Route: 058
  2. DOXIL /00330904/ [Suspect]
     Indication: PROSTATE CANCER
     Dosage: UNK UNK, EVERY 3 WEEKS
     Route: 042
     Dates: start: 201302, end: 201304
  3. DOCETAXEL [Suspect]
     Indication: PROSTATE CANCER
     Dosage: UNK
     Route: 065
  4. ZYTIGA [Suspect]
     Indication: PROSTATE CANCER
     Dosage: 250 MG, QD
     Route: 048
     Dates: start: 201304
  5. PREDNISONE [Concomitant]
     Indication: HYPERTHYROIDISM
     Dosage: 5 MG, UNK
     Route: 048
     Dates: start: 201304

REACTIONS (23)
  - Bone cancer [Fatal]
  - Prostate cancer [Fatal]
  - Decreased appetite [Not Recovered/Not Resolved]
  - White blood cell count abnormal [Unknown]
  - Red blood cell count abnormal [Unknown]
  - Abnormal loss of weight [Not Recovered/Not Resolved]
  - Body height decreased [Unknown]
  - Pain in extremity [Not Recovered/Not Resolved]
  - Prostatic disorder [Unknown]
  - Abdominal discomfort [Not Recovered/Not Resolved]
  - Fatigue [Not Recovered/Not Resolved]
  - Joint swelling [Not Recovered/Not Resolved]
  - Arthritis [Not Recovered/Not Resolved]
  - Confusional state [Not Recovered/Not Resolved]
  - Delirium [Not Recovered/Not Resolved]
  - Dementia [Not Recovered/Not Resolved]
  - Fall [Not Recovered/Not Resolved]
  - Pain [Not Recovered/Not Resolved]
  - Unevaluable event [Unknown]
  - Erythema [Recovered/Resolved]
  - Hypersensitivity [Recovered/Resolved]
  - Vomiting [Recovered/Resolved]
  - Insomnia [Not Recovered/Not Resolved]
